FAERS Safety Report 6158334-9 (Version None)
Quarter: 2009Q2

REPORT INFORMATION
  Report Type: 
  Country: None (occurrence: None)
  Receive Date: 20090417
  Receipt Date: 20090407
  Transmission Date: 20091009
  Serious: Yes (Other)
  Sender: FDA-Public Use
  Company Number: US-BIOGENIDEC-2009BI009414

PATIENT
  Age: 52 Year
  Sex: Male

DRUGS (2)
  1. TYSABRI [Suspect]
     Indication: CROHN'S DISEASE
     Route: 042
     Dates: start: 20080530, end: 20080730
  2. PREDNISOLONE [Concomitant]
     Indication: CROHN'S DISEASE

REACTIONS (4)
  - MYELODYSPLASTIC SYNDROME [None]
  - MYELOFIBROSIS [None]
  - T-CELL LYMPHOMA [None]
  - THROMBOCYTOPENIA [None]
